FAERS Safety Report 7458143-4 (Version None)
Quarter: 2011Q2

REPORT INFORMATION
  Report Type: 
  Country: None (occurrence: None)
  Receive Date: 20110504
  Receipt Date: 20110420
  Transmission Date: 20111010
  Serious: Yes (Hospitalization)
  Sender: FDA-Public Use
  Company Number: PHHO2011DE04716

PATIENT
  Sex: Female
  Weight: 62.8 kg

DRUGS (2)
  1. IBUPROFEN [Concomitant]
  2. FTY [Suspect]
     Indication: MULTIPLE SCLEROSIS
     Dosage: 0.5 MG, UNK
     Route: 048
     Dates: start: 20101109, end: 20110303

REACTIONS (1)
  - BLADDER CANCER [None]
